FAERS Safety Report 4758706-0 (Version None)
Quarter: 2005Q3

REPORT INFORMATION
  Report Type: 
  Country: None (occurrence: None)
  Receive Date: 20050826
  Receipt Date: 20050726
  Transmission Date: 20060218
  Serious: Yes (Death)
  Sender: FDA-Public Use
  Company Number: 163-20785-05050266

PATIENT
  Age: 85 Year
  Sex: Male

DRUGS (10)
  1. THALOMID [Suspect]
     Indication: MYELODYSPLASTIC SYNDROME
     Dosage: 50 MG, DAILY, ORAL
     Route: 048
     Dates: start: 20040330, end: 20050502
  2. PROTONIX [Concomitant]
  3. METOPROLOL TARTRATE [Concomitant]
  4. DECADRON [Concomitant]
  5. COLACE (DOCUSATE SODIUM) [Concomitant]
  6. VITAMIN C (ASCORBIC ACID) [Concomitant]
  7. MULTIVITAMIN [Concomitant]
  8. VITAMIN B6 [Concomitant]
  9. FLOXIN OTIC (FLOXIN OTIC) [Concomitant]
  10. MECLIZINE [Concomitant]

REACTIONS (1)
  - RESPIRATORY FAILURE [None]
